FAERS Safety Report 10974096 (Version 4)
Quarter: 2015Q2

REPORT INFORMATION
  Report Type: Spontaneous
  Country: GB (occurrence: GB)
  Receive Date: 20150401
  Receipt Date: 20150427
  Transmission Date: 20150821
  Serious: Yes (Other)
  Sender: FDA-Public Use
  Company Number: GB-JNJFOC-20150319535

PATIENT
  Sex: Male

DRUGS (1)
  1. SIMPONI [Suspect]
     Active Substance: GOLIMUMAB
     Indication: PRODUCT USED FOR UNKNOWN INDICATION
     Route: 058

REACTIONS (10)
  - Musculoskeletal pain [Recovered/Resolved]
  - Pain in extremity [Unknown]
  - Depressed mood [Unknown]
  - Psoriasis [Unknown]
  - Procedural pain [Unknown]
  - Chest pain [Not Recovered/Not Resolved]
  - Feeling abnormal [Unknown]
  - Joint effusion [Not Recovered/Not Resolved]
  - Gait disturbance [Unknown]
  - Adverse drug reaction [Unknown]
